FAERS Safety Report 10930181 (Version 2)
Quarter: 2015Q1

REPORT INFORMATION
  Report Type: Report from Study
  Country: BR (occurrence: BR)
  Receive Date: 20150319
  Receipt Date: 20150331
  Transmission Date: 20150721
  Serious: Yes (Hospitalization, Other)
  Sender: FDA-Public Use
  Company Number: PHHY2015BR031761

PATIENT
  Age: 44 Year
  Sex: Female
  Weight: 75 kg

DRUGS (2)
  1. GILENYA [Suspect]
     Active Substance: FINGOLIMOD HYDROCHLORIDE
     Indication: MULTIPLE SCLEROSIS
     Dosage: 1 DF (1 CAPSULE), QD
     Route: 048
     Dates: start: 2013, end: 201404
  2. GILENYA [Suspect]
     Active Substance: FINGOLIMOD HYDROCHLORIDE
     Dosage: 1 DF (1 CAPSULE), QD
     Route: 048
     Dates: end: 201407

REACTIONS (5)
  - Decreased immune responsiveness [Recovering/Resolving]
  - Immune system disorder [Recovering/Resolving]
  - Urinary tract infection [Not Recovered/Not Resolved]
  - Weight decreased [Unknown]
  - Infection [Unknown]

NARRATIVE: CASE EVENT DATE: 201404
